FAERS Safety Report 12375341 (Version 3)
Quarter: 2016Q2

REPORT INFORMATION
  Report Type: Spontaneous
  Country: JP (occurrence: JP)
  Receive Date: 20160517
  Receipt Date: 20160609
  Transmission Date: 20160815
  Serious: Yes (Other)
  Sender: FDA-Public Use
  Company Number: JP-ASTELLAS-2016JP005203AA

PATIENT
  Age: 77 Year
  Sex: Female
  Weight: 47 kg

DRUGS (10)
  1. MASHININGAN [Concomitant]
     Active Substance: HERBALS
     Indication: CONSTIPATION
     Route: 065
     Dates: start: 20151026
  2. DEPAS [Concomitant]
     Active Substance: ETIZOLAM
     Indication: ANXIETY
     Dosage: 0.5 MG, AS NEEDED
     Route: 065
  3. SOLANAX [Concomitant]
     Active Substance: ALPRAZOLAM
     Indication: DIZZINESS
     Dosage: 0.4 MG, TWICE DAILY
     Route: 065
     Dates: start: 20160319, end: 20160326
  4. AMLODIPINE                         /00972402/ [Concomitant]
     Active Substance: AMLODIPINE BESYLATE
     Indication: HYPERTENSION
     Route: 048
     Dates: start: 20141127, end: 20160324
  5. BUFFERIN A                         /00009201/ [Concomitant]
     Active Substance: ASPIRIN\DIHYDROXYALUMINUM AMINOACETATE ANHYDROUS\MAGNESIUM CARBONATE
     Indication: CEREBRAL INFARCTION
     Route: 065
     Dates: start: 20130517
  6. DACLATASVIR. [Concomitant]
     Active Substance: DACLATASVIR
     Indication: HEPATITIS C
     Route: 065
     Dates: start: 20151208
  7. BETANIS [Suspect]
     Active Substance: MIRABEGRON
     Indication: HYPERTONIC BLADDER
     Route: 048
     Dates: start: 20151214, end: 20160328
  8. AMLODIPINE                         /00972402/ [Concomitant]
     Active Substance: AMLODIPINE BESYLATE
     Indication: HYPERTENSIVE EMERGENCY
     Route: 048
     Dates: start: 20160325
  9. DIOVAN [Concomitant]
     Active Substance: VALSARTAN
     Indication: HYPERTENSION
     Route: 048
  10. ASUNAPREVIR [Concomitant]
     Active Substance: ASUNAPREVIR
     Indication: HEPATITIS C
     Route: 065
     Dates: start: 20151208

REACTIONS (1)
  - Hypertensive emergency [Recovering/Resolving]

NARRATIVE: CASE EVENT DATE: 201603
